FAERS Safety Report 17529213 (Version 1)
Quarter: 2020Q1

REPORT INFORMATION
  Report Type: Spontaneous
  Country: AR (occurrence: AR)
  Receive Date: 20200311
  Receipt Date: 20200311
  Transmission Date: 20200409
  Serious: Yes (Other)
  Sender: FDA-Public Use
  Company Number: AR-GLAXOSMITHKLINE-AR2019GSK099215

PATIENT
  Sex: Female

DRUGS (1)
  1. BENLYSTA [Suspect]
     Active Substance: BELIMUMAB
     Indication: SYSTEMIC LUPUS ERYTHEMATOSUS
     Dosage: UNK
     Dates: start: 20161001

REACTIONS (18)
  - Peripheral swelling [Unknown]
  - Infusion related reaction [Unknown]
  - Musculoskeletal stiffness [Unknown]
  - Asthenia [Unknown]
  - Fall [Unknown]
  - Road traffic accident [Unknown]
  - Angiopathy [Unknown]
  - Vein rupture [Unknown]
  - Malaise [Unknown]
  - Stomatitis [Unknown]
  - Pain [Unknown]
  - Arthralgia [Unknown]
  - Intervertebral disc protrusion [Unknown]
  - Hypersensitivity [Unknown]
  - Fatigue [Unknown]
  - Product dose omission [Unknown]
  - Rash macular [Recovered/Resolved]
  - Hypoaesthesia [Unknown]
